FAERS Safety Report 8610324-X (Version None)
Quarter: 2012Q3

REPORT INFORMATION
  Report Type: 
  Country: None (occurrence: None)
  Receive Date: 20120822
  Receipt Date: 20120813
  Transmission Date: 20120928
  Serious: Yes (Hospitalization, Other)
  Sender: FDA-Public Use
  Company Number: PHEH2012US014466

PATIENT
  Sex: Female
  Weight: 68.027 kg

DRUGS (3)
  1. GILENYA [Suspect]
     Indication: MULTIPLE SCLEROSIS
     Dosage: 0.5 MG, QD
     Route: 048
     Dates: start: 20110719, end: 20120718
  2. PREMPRO [Concomitant]
     Dosage: 0.45-1.5 MG DAILY
     Route: 048
  3. PRINZIDE [Concomitant]
     Indication: HYPERTENSION
     Dosage: 10-12.5 MG TABLET DAILY
     Route: 048

REACTIONS (11)
  - PERICARDIAL CALCIFICATION [None]
  - PERICARDITIS [None]
  - BLOOD THYROID STIMULATING HORMONE INCREASED [None]
  - HEADACHE [None]
  - OEDEMA PERIPHERAL [None]
  - ATRIOVENTRICULAR BLOCK FIRST DEGREE [None]
  - FATIGUE [None]
  - LYMPHOCYTE COUNT DECREASED [None]
  - CHEST PAIN [None]
  - ARTERIOSCLEROSIS CORONARY ARTERY [None]
  - WHITE BLOOD CELL COUNT DECREASED [None]
